FAERS Safety Report 16766953 (Version 1)
Quarter: 2019Q4

REPORT INFORMATION
  Report Type: Spontaneous
  Country: US (occurrence: US)
  Receive Date: 20190902
  Receipt Date: 20190902
  Transmission Date: 20200122
  Serious: No
  Sender: FDA-Public Use
  Company Number: None

PATIENT
  Age: 67 Year
  Sex: Female
  Weight: 103.5 kg

DRUGS (14)
  1. AJOVY [Suspect]
     Active Substance: FREMANEZUMAB-VFRM
     Indication: MIGRAINE
     Dosage: ?          QUANTITY:1 INJECTION(S);OTHER FREQUENCY:MONTHLY;OTHER ROUTE:INJECTIONS?
  2. PROMETHAZINE [Concomitant]
     Active Substance: PROMETHAZINE HYDROCHLORIDE
  3. BENADRYL [Concomitant]
     Active Substance: DIPHENHYDRAMINE HYDROCHLORIDE
  4. TIZANADINE [Concomitant]
     Active Substance: TIZANIDINE
  5. LOW DOSE NALTREXONE [Concomitant]
     Active Substance: NALTREXONE
  6. EXECEDRIN [Concomitant]
  7. NEXIUM [Concomitant]
     Active Substance: ESOMEPRAZOLE MAGNESIUM
  8. METFORMIN [Concomitant]
     Active Substance: METFORMIN HYDROCHLORIDE
  9. CENTRUM SILVER [Concomitant]
     Active Substance: MINERALS\VITAMINS
  10. VIT D 3 [Concomitant]
  11. AJOVY [Concomitant]
     Active Substance: FREMANEZUMAB-VFRM
  12. METOPROLOL. [Concomitant]
     Active Substance: METOPROLOL
  13. GABAPENTIN. [Concomitant]
     Active Substance: GABAPENTIN
  14. SPIRONALACTONE [Concomitant]
     Active Substance: SPIRONOLACTONE

REACTIONS (2)
  - Rhinitis [None]
  - Sinusitis [None]

NARRATIVE: CASE EVENT DATE: 20190615
